FAERS Safety Report 9247669 (Version 1)
Quarter: 2013Q2

REPORT INFORMATION
  Report Type: Report from Study
  Country: MX (occurrence: MX)
  Receive Date: 20130423
  Receipt Date: 20130423
  Transmission Date: 20140414
  Serious: Yes (Death, Hospitalization)
  Sender: FDA-Public Use
  Company Number: PHHY2013MX039443

PATIENT
  Age: 86 Year
  Sex: Female

DRUGS (1)
  1. ONBREZ [Suspect]
     Indication: ASTHMA
     Dosage: 150 UG, DAILY
     Dates: start: 201104, end: 20130402

REACTIONS (3)
  - Respiratory failure [Fatal]
  - Disease complication [Unknown]
  - Off label use [Unknown]
